FAERS Safety Report 4435822-4 (Version None)
Quarter: 2004Q3

REPORT INFORMATION
  Report Type: 
  Country: None (occurrence: None)
  Receive Date: 20040726
  Receipt Date: 20040302
  Transmission Date: 20050211
  Serious: Yes (Other)
  Sender: FDA-Public Use
  Company Number: USA030946171

PATIENT
  Age: 52 Year
  Sex: Female
  Weight: 60 kg

DRUGS (25)
  1. EVISTA [Suspect]
     Indication: OSTEOPOROSIS
     Dosage: UNK
     Route: 065
     Dates: start: 19980101, end: 20031001
  2. FORTEO [Suspect]
     Dosage: 20 UG/1 DAY
     Dates: start: 20031212
  3. HYDROCORTISONE [Concomitant]
  4. PREDNISONE [Concomitant]
  5. SYNTHROID [Concomitant]
  6. MAXAIR [Concomitant]
  7. CALCIUM [Concomitant]
  8. THEOPHYLLINE [Concomitant]
  9. ALBUTEROL [Concomitant]
  10. ATROVENT [Concomitant]
  11. ADVAIR DISKUS 100/50 [Concomitant]
  12. PREVACID [Concomitant]
  13. ZANTAC [Concomitant]
  14. NEURONTIN [Concomitant]
  15. ASPIRIN [Concomitant]
  16. BENADRYL [Concomitant]
  17. TYLENOL [Concomitant]
  18. METHOTREXATE [Concomitant]
  19. LEUCOVORIN CALCIUM [Concomitant]
  20. FOLIC ACID [Concomitant]
  21. RANITIDINE [Concomitant]
  22. POTASSIUM [Concomitant]
  23. GUAIFENESIN DM [Concomitant]
  24. IMMUNE GLOBULIN INTRAVENOUS (HUMAN) [Concomitant]
  25. VITAMINS NOS [Concomitant]

REACTIONS (13)
  - BUTTOCK PAIN [None]
  - FALL [None]
  - HEPATIC ENZYME INCREASED [None]
  - INJECTION SITE ERYTHEMA [None]
  - MULTIPLE FRACTURES [None]
  - MUSCLE CRAMP [None]
  - MUSCLE FATIGUE [None]
  - NAUSEA [None]
  - OSTEOPOROSIS [None]
  - PAIN [None]
  - PAIN IN EXTREMITY [None]
  - RESPIRATORY TRACT INFECTION [None]
  - SURGERY [None]
